FAERS Safety Report 5907668-9 (Version None)
Quarter: 2008Q4

REPORT INFORMATION
  Report Type: 
  Country: None (occurrence: None)
  Receive Date: 20081003
  Receipt Date: 19970225
  Transmission Date: 20090506
  Serious: Yes (Death, Hospitalization)
  Sender: FDA-Public Use
  Company Number: US-ROCHE-73432

PATIENT
  Age: 19 Year
  Sex: Male

DRUGS (2)
  1. ACCUTANE [Suspect]
     Indication: ACNE
     Route: 048
     Dates: start: 19960601, end: 19960801
  2. MERCAPTOPURINE [Concomitant]
     Indication: CROHN'S DISEASE

REACTIONS (4)
  - DEATH [None]
  - INFECTIOUS MONONUCLEOSIS [None]
  - LEUKAEMIA [None]
  - WHITE BLOOD CELL COUNT DECREASED [None]
